FAERS Safety Report 7790894-4 (Version None)
Quarter: 2011Q3

REPORT INFORMATION
  Report Type: 
  Country: None (occurrence: None)
  Receive Date: 20110930
  Receipt Date: 20110921
  Transmission Date: 20111222
  Serious: Yes (Other)
  Sender: FDA-Public Use
  Company Number: US-ASTRAZENECA-2011SE56780

PATIENT

DRUGS (1)
  1. VIMOVO [Suspect]
     Route: 048

REACTIONS (1)
  - HAEMORRHAGE [None]
